FAERS Safety Report 24823119 (Version 1)
Quarter: 2025Q1

REPORT INFORMATION
  Report Type: Spontaneous
  Country: CN (occurrence: CN)
  Receive Date: 20250109
  Receipt Date: 20250109
  Transmission Date: 20250409
  Serious: Yes (Hospitalization)
  Sender: JIANGSU HENGRUI PHARMACEUTICALS CO., LTD.
  Company Number: CN-JIANGSU HENGRUI PHARMACEUTICALS CO., LTD.-H2024245879

PATIENT
  Age: 75 Year
  Weight: 65 kg

DRUGS (1)
  1. PACLITAXEL [Suspect]
     Active Substance: PACLITAXEL
     Indication: Pancreatic carcinoma

REACTIONS (8)
  - Palpitations [Recovering/Resolving]
  - Cardiac failure [Recovering/Resolving]
  - Peripheral coldness [Recovering/Resolving]
  - Coma [Recovering/Resolving]
  - Anal incontinence [Recovering/Resolving]
  - Pyrexia [Recovering/Resolving]
  - Urinary incontinence [Recovering/Resolving]
  - Cardiogenic shock [Recovering/Resolving]
